FAERS Safety Report 19217888 (Version 1)
Quarter: 2021Q2

REPORT INFORMATION
  Report Type: Spontaneous
  Country: US (occurrence: US)
  Receive Date: 20210505
  Receipt Date: 20210505
  Transmission Date: 20210717
  Serious: No
  Sender: FDA-Public Use
  Company Number: US-BAYER-2021-135147

PATIENT
  Age: 68 Year
  Sex: Female

DRUGS (4)
  1. ARMOUR THYROID [Concomitant]
     Active Substance: THYROID, PORCINE
  2. TRIAZOLAM. [Concomitant]
     Active Substance: TRIAZOLAM
  3. CLIMARA [Suspect]
     Active Substance: ESTRADIOL
     Dosage: UNK
     Route: 062
     Dates: start: 2020
  4. HC HYDROCORTISON [Concomitant]

REACTIONS (2)
  - Hot flush [None]
  - Product quality issue [None]

NARRATIVE: CASE EVENT DATE: 202104
